FAERS Safety Report 7551161-7 (Version None)
Quarter: 2011Q2

REPORT INFORMATION
  Report Type: 
  Country: None (occurrence: None)
  Receive Date: 20110616
  Receipt Date: 20110609
  Transmission Date: 20111010
  Serious: Yes (Hospitalization)
  Sender: FDA-Public Use
  Company Number: US-ABBOTT-11P-163-0731812-00

PATIENT
  Age: 79 Year
  Sex: Male

DRUGS (8)
  1. XANAX [Concomitant]
     Indication: ANXIETY
     Dosage: AT BEDTIME AS NEEDED
  2. HUMIRA [Suspect]
     Indication: CROHN'S DISEASE
     Dates: start: 20110114
  3. METAMUCIL-2 [Concomitant]
     Indication: PRODUCT USED FOR UNKNOWN INDICATION
     Dosage: 6 DAILY
  4. UNKNOWN MEDICATION [Concomitant]
     Indication: MUSCLE SPASMS
  5. LOMOTIL [Concomitant]
     Indication: PRODUCT USED FOR UNKNOWN INDICATION
     Dosage: 6 PILLS DAILY
  6. MEGACE [Concomitant]
     Indication: APPETITE DISORDER
  7. LOPRESSOR [Concomitant]
     Indication: BLOOD PRESSURE
  8. VITAMIN B-12 [Concomitant]
     Indication: PRODUCT USED FOR UNKNOWN INDICATION
     Dosage: EVERY MONTH

REACTIONS (3)
  - HOSPITALISATION [None]
  - DEHYDRATION [None]
  - DIARRHOEA [None]
